FAERS Safety Report 8370586-3 (Version None)
Quarter: 2012Q2

REPORT INFORMATION
  Report Type: 
  Country: None (occurrence: None)
  Receive Date: 20120517
  Receipt Date: 20120507
  Transmission Date: 20120825
  Serious: Yes (Life-Threatening, Other)
  Sender: FDA-Public Use
  Company Number: FK201201305

PATIENT
  Sex: Male

DRUGS (1)
  1. HEPARIN SODIUM [Suspect]
     Indication: VASCULAR GRAFT
     Dosage: MULTIPLE UNKNOWN DOSES
     Dates: start: 20080502

REACTIONS (10)
  - DRUG INEFFECTIVE [None]
  - PAIN [None]
  - DRY GANGRENE [None]
  - COAGULOPATHY [None]
  - BACTERIAL INFECTION [None]
  - PERIPHERAL VASCULAR DISORDER [None]
  - HYPOTENSION [None]
  - SKIN DISCOLOURATION [None]
  - THROMBOCYTOPENIA [None]
  - ANAPHYLACTOID REACTION [None]
